FAERS Safety Report 7117608 (Version 1)
Quarter: 2020Q3

REPORT INFORMATION
  Report Type: Report from Study
  Country: GB (occurrence: GB)
  Receive Date: 20090917
  Receipt Date: 20090917
  Transmission Date: 20201105
  Serious: Yes (Hospitalization, Other)
  Sender: FDA-Public Use
  Company Number: GB-ROCHE-654898

PATIENT
  Age: 76 Year
  Sex: Female

DRUGS (2)
  1. IBANDRONIC ACID. [Suspect]
     Active Substance: IBANDRONIC ACID
     Indication: OSTEOPOROSIS
     Dosage: FREQUENCY REPORTED AS: MONTHLY
     Route: 048
  2. ANTIBIOTIC NOS [Concomitant]

REACTIONS (4)
  - Tooth extraction [Unknown]
  - Swelling [Unknown]
  - Jaw fracture [Unknown]
  - Pain [Unknown]
